FAERS Safety Report 4747680-9 (Version None)
Quarter: 2005Q3

REPORT INFORMATION
  Report Type: 
  Country: None (occurrence: None)
  Receive Date: 20050817
  Receipt Date: 20050817
  Transmission Date: 20060218
  Serious: Yes (Hospitalization, Other)
  Sender: FDA-Public Use
  Company Number: None

PATIENT
  Sex: Male
  Weight: 110.2241 kg

DRUGS (6)
  1. XOLAIR [Suspect]
     Indication: ASTHMA
     Dosage: 300 MG SUBCUT Q MONTH
     Route: 058
     Dates: start: 20041201
  2. IMMUNOTHERAPY (ALLEGAN) [Concomitant]
  3. ADVAIR DISKUS 100/50 [Concomitant]
  4. RHINOCORT [Concomitant]
  5. ZYTRTEC [Concomitant]
  6. MAXAIR [Concomitant]

REACTIONS (2)
  - COLITIS ULCERATIVE [None]
  - MYOCARDITIS [None]
